FAERS Safety Report 25524957 (Version 1)
Quarter: 2025Q3

REPORT INFORMATION
  Report Type: Spontaneous
  Country: JP (occurrence: JP)
  Receive Date: 20250707
  Receipt Date: 20250707
  Transmission Date: 20251021
  Serious: Yes (Death)
  Sender: GLAND PHARMA LTD
  Company Number: JP-GLANDPHARMA-JP-2025GLNLIT01591

PATIENT

DRUGS (3)
  1. CISPLATIN [Suspect]
     Active Substance: CISPLATIN
     Indication: Oesophageal squamous cell carcinoma
     Route: 042
  2. FLUOROURACIL [Suspect]
     Active Substance: FLUOROURACIL
     Indication: Oesophageal squamous cell carcinoma
     Route: 042
  3. PEMBROLIZUMAB [Suspect]
     Active Substance: PEMBROLIZUMAB
     Indication: Oesophageal squamous cell carcinoma
     Route: 042

REACTIONS (2)
  - Toxicity to various agents [Fatal]
  - Product use in unapproved indication [Unknown]
